FAERS Safety Report 7871636-0 (Version None)
Quarter: 2011Q4

REPORT INFORMATION
  Report Type: 
  Country: None (occurrence: None)
  Receive Date: 20111014
  Receipt Date: 20101108
  Transmission Date: 20120403
  Serious: Yes (Hospitalization)
  Sender: FDA-Public Use
  Company Number: AXC-2010-000240

PATIENT
  Age: 57 Year
  Sex: Female

DRUGS (4)
  1. INSULIN (INSULIN) [Concomitant]
  2. CONJUGATED ESTROGENS [Concomitant]
  3. SUCRALFATE [Suspect]
     Indication: PEPTIC ULCER
     Dosage: 4 G, QD, ORAL
     Route: 048
  4. RANITIDINE /00550802/ (RANITIDINE HYDROCHLORIDE) [Concomitant]

REACTIONS (1)
  - BEZOAR [None]
